FAERS Safety Report 23445700 (Version 1)
Quarter: 2024Q1

REPORT INFORMATION
  Report Type: Report from Study
  Country: IN (occurrence: None)
  Receive Date: 20240126
  Receipt Date: 20240126
  Transmission Date: 20240410
  Serious: Yes (Other)
  Sender: FDA-Public Use
  Company Number: 2024A015989

PATIENT
  Age: 61 Year
  Sex: Male
  Weight: 61 kg

DRUGS (1)
  1. LYNPARZA [Suspect]
     Active Substance: OLAPARIB
     Indication: Drug therapy
     Route: 048

REACTIONS (1)
  - Prostatic specific antigen increased [Not Recovered/Not Resolved]
